FAERS Safety Report 6589138-0 (Version None)
Quarter: 2010Q1

REPORT INFORMATION
  Report Type: 
  Country: None (occurrence: None)
  Receive Date: 20100218
  Receipt Date: 20100212
  Transmission Date: 20100710
  Serious: Yes (Hospitalization)
  Sender: FDA-Public Use
  Company Number: PHHY2010DE08138

PATIENT
  Age: 72 Year
  Sex: Male

DRUGS (9)
  1. EXELON [Suspect]
     Indication: DEMENTIA ALZHEIMER'S TYPE
     Dosage: 4.6 MG/24 HRS
     Route: 062
     Dates: start: 20090916
  2. EXELON [Suspect]
     Dosage: 9.5 MG/ 24HRS
     Route: 062
     Dates: start: 20090901, end: 20091201
  3. CITALOPRAM HYDROBROMIDE [Concomitant]
     Indication: DEPRESSION
     Dosage: 20 MG/ DAY
     Route: 048
     Dates: start: 20090901, end: 20091201
  4. OPIPRAMOL [Concomitant]
     Indication: ANXIETY DISORDER
     Dosage: 50 MG/ DAY
     Route: 048
     Dates: start: 20090301, end: 20091201
  5. AMLODIPINE [Concomitant]
     Indication: HYPERTENSION
     Dosage: 5 MG/ DAY
     Route: 048
  6. LISINOPRIL [Concomitant]
     Indication: HYPERTENSION
     Dosage: 20 MG/ DAY
     Route: 048
  7. BISOPROLOL FUMARATE [Concomitant]
     Indication: HYPERTENSION
     Dosage: 5 MG / DAY
     Route: 048
  8. HYDROCHLOROTHIAZIDE [Concomitant]
     Dosage: 25 MG/ DAY
     Route: 048
  9. SIMVASTATIN [Concomitant]
     Dosage: 40 MG/ DAY
     Route: 048

REACTIONS (1)
  - ELECTROCARDIOGRAM QT PROLONGED [None]
